FAERS Safety Report 7448167-5 (Version None)
Quarter: 2011Q2

REPORT INFORMATION
  Report Type: 
  Country: None (occurrence: None)
  Receive Date: 20110429
  Receipt Date: 20100308
  Transmission Date: 20111010
  Serious: No
  Sender: FDA-Public Use
  Company Number: US-ASTRAZENECA-2010SE09985

PATIENT
  Age: 75 Year
  Sex: Male
  Weight: 75.7 kg

DRUGS (10)
  1. PRANDIN NOVO [Concomitant]
  2. NORDISK [Concomitant]
  3. LIPITOR [Concomitant]
  4. ASPIRIN [Concomitant]
  5. NEXIUM [Suspect]
     Indication: CORONARY ARTERY BYPASS
     Route: 048
     Dates: start: 20050101, end: 20100101
  6. PEPCID [Interacting]
     Route: 048
  7. JANUVIA [Concomitant]
  8. METOPROLOL SUCCINATE [Concomitant]
  9. CLOPIDOGREL [Interacting]
     Indication: STENT PLACEMENT
     Route: 048
     Dates: start: 20070101
  10. DIGOXIN [Concomitant]

REACTIONS (2)
  - DRUG INTERACTION [None]
  - CORONARY ARTERIAL STENT INSERTION [None]
